FAERS Safety Report 11090219 (Version 1)
Quarter: 2015Q2

REPORT INFORMATION
  Report Type: Spontaneous
  Country: US (occurrence: None)
  Receive Date: 20150504
  Receipt Date: 20150504
  Transmission Date: 20150821
  Serious: Yes (Hospitalization)
  Sender: FDA-Public Use
  Company Number: None

PATIENT
  Age: 84 Year
  Sex: Male
  Weight: 115.5 kg

DRUGS (1)
  1. METHYLPREDNISOLONE. [Suspect]
     Active Substance: METHYLPREDNISOLONE
     Indication: PAIN
     Dosage: MG, PO
     Route: 048
     Dates: start: 20150423, end: 20150429

REACTIONS (1)
  - Delirium [None]

NARRATIVE: CASE EVENT DATE: 20150429
